FAERS Safety Report 15140824 (Version 1)
Quarter: 2018Q3

REPORT INFORMATION
  Report Type: Spontaneous
  Country: US (occurrence: US)
  Receive Date: 20180713
  Receipt Date: 20180713
  Transmission Date: 20181010
  Serious: No
  Sender: FDA-Public Use
  Company Number: US-ASTELLAS-2017US046510

PATIENT
  Age: 79 Year
  Sex: Female

DRUGS (1)
  1. MYRBETRIQ [Suspect]
     Active Substance: MIRABEGRON
     Indication: BLADDER DISORDER
     Route: 065
     Dates: start: 201710

REACTIONS (5)
  - Hyperhidrosis [Unknown]
  - Intentional product misuse [Unknown]
  - Headache [Unknown]
  - Depressed level of consciousness [Unknown]
  - Feeling hot [Unknown]

NARRATIVE: CASE EVENT DATE: 20171029
